FAERS Safety Report 4281786-6 (Version None)
Quarter: 2004Q1

REPORT INFORMATION
  Report Type: 
  Country: None (occurrence: None)
  Receive Date: 20040128
  Receipt Date: 20040121
  Transmission Date: 20041129
  Serious: Yes (Death)
  Sender: FDA-Public Use
  Company Number: 2004-112045-NL

PATIENT
  Age: 34 Year
  Sex: Male

DRUGS (5)
  1. DEXAMETHASONE [Suspect]
     Dosage: 10 MG
     Route: 030
     Dates: start: 20031212, end: 20031213
  2. CETOROLAC [Suspect]
     Dosage: 60 MG
     Route: 048
     Dates: start: 20031212, end: 20031213
  3. LORAZEPAM [Suspect]
     Dosage: 2.5 MG
     Route: 048
     Dates: start: 20031213, end: 20031213
  4. DICLOFENAC SODIUM [Suspect]
     Dosage: DF
     Route: 048
     Dates: end: 20031213
  5. PARACETAMOL [Concomitant]

REACTIONS (6)
  - HYPERLACTACIDAEMIA [None]
  - METABOLIC ACIDOSIS [None]
  - MULTI-ORGAN FAILURE [None]
  - NEUROLEPTIC MALIGNANT SYNDROME [None]
  - RASH [None]
  - RHABDOMYOLYSIS [None]
